FAERS Safety Report 19624667 (Version 3)
Quarter: 2021Q3

REPORT INFORMATION
  Report Type: Spontaneous
  Country: CA (occurrence: CA)
  Receive Date: 20210729
  Receipt Date: 20210930
  Transmission Date: 20211014
  Serious: Yes (Other)
  Sender: FDA-Public Use
  Company Number: CA-CELLTRION INC.-2021CA009918

PATIENT

DRUGS (8)
  1. INFLECTRA [Suspect]
     Active Substance: INFLIXIMAB-DYYB
     Dosage: 5 MG/KG, AT WEEK 0,2,6 THEN EVERY 8 WEEKS
     Route: 042
     Dates: start: 20210616
  2. VIT D [Concomitant]
     Active Substance: VITAMIN D NOS
     Dosage: UNK
  3. INFLECTRA [Suspect]
     Active Substance: INFLIXIMAB-DYYB
     Dosage: 8 MG/KG
     Route: 042
  4. METHOTREXATE SODIUM. [Suspect]
     Active Substance: METHOTREXATE SODIUM
     Dosage: 25 MG, WEEKLY
     Dates: start: 20210323
  5. INFLECTRA [Suspect]
     Active Substance: INFLIXIMAB-DYYB
     Dosage: 5 MG/KG, AT WEEK 0,2,6 THEN EVERY 8 WEEKS
     Route: 042
     Dates: start: 20210908
  6. INFLECTRA [Suspect]
     Active Substance: INFLIXIMAB-DYYB
     Dosage: 5 MG/KG, AT WEEK 0,2,6 THEN EVERY 8 WEEKS
     Route: 042
     Dates: start: 20210714
  7. FOLIC ACID. [Concomitant]
     Active Substance: FOLIC ACID
     Dosage: UNK
  8. INFLECTRA [Suspect]
     Active Substance: INFLIXIMAB-DYYB
     Indication: CROHN^S DISEASE
     Dosage: 5 MG/KG, AT WEEK 0,2,6 THEN EVERY 8 WEEKS
     Route: 042
     Dates: start: 20210602

REACTIONS (10)
  - Constipation [Not Recovered/Not Resolved]
  - Wound [Unknown]
  - Asthenia [Not Recovered/Not Resolved]
  - Anal abscess [Unknown]
  - Decreased appetite [Not Recovered/Not Resolved]
  - Fatigue [Not Recovered/Not Resolved]
  - Scratch [Unknown]
  - Anal fissure [Not Recovered/Not Resolved]
  - Impaired healing [Unknown]
  - Scab [Unknown]

NARRATIVE: CASE EVENT DATE: 2021
